FAERS Safety Report 18316522 (Version 1)
Quarter: 2020Q3

REPORT INFORMATION
  Report Type: Other
  Country: IL (occurrence: IL)
  Receive Date: 20200927
  Receipt Date: 20200927
  Transmission Date: 20201103
  Serious: Yes (Other)
  Sender: FDA-Public Use
  Company Number: IL-ROCHE-2682026

PATIENT
  Sex: Male

DRUGS (2)
  1. OCREVUS [Suspect]
     Active Substance: OCRELIZUMAB
     Indication: PRIMARY PROGRESSIVE MULTIPLE SCLEROSIS
     Route: 042
     Dates: start: 20200823
  2. FAMPYRA [Concomitant]
     Active Substance: DALFAMPRIDINE

REACTIONS (4)
  - Hemiparesis [Not Recovered/Not Resolved]
  - Gait disturbance [Not Recovered/Not Resolved]
  - Rhinorrhoea [Not Recovered/Not Resolved]
  - Cough [Not Recovered/Not Resolved]

NARRATIVE: CASE EVENT DATE: 20200907
